FAERS Safety Report 23858148 (Version 1)
Quarter: 2024Q2

REPORT INFORMATION
  Report Type: Spontaneous
  Country: US (occurrence: US)
  Receive Date: 20240515
  Receipt Date: 20240515
  Transmission Date: 20240716
  Serious: No
  Sender: FDA-Public Use
  Company Number: US-002147023-NVSC2023US182171

PATIENT
  Age: 38 Year

DRUGS (5)
  1. FULVESTRANT [Suspect]
     Active Substance: FULVESTRANT
     Indication: Breast cancer recurrent
     Dosage: 500 MG (2 X MONTH)
     Route: 065
     Dates: start: 202301
  2. FULVESTRANT [Suspect]
     Active Substance: FULVESTRANT
     Dosage: 500 MG, QMO
     Route: 065
  3. IBRANCE [Suspect]
     Active Substance: PALBOCICLIB
     Indication: Breast cancer recurrent
     Dosage: 1.25 MG
     Route: 065
     Dates: start: 202301, end: 20230430
  4. IBRANCE [Suspect]
     Active Substance: PALBOCICLIB
     Dosage: 1.00 MG (FROM MAY, JUN WITH 21 DAYS ON AND 7 DAYS OFF)
     Route: 065
     Dates: start: 202305
  5. LETROZOLE [Suspect]
     Active Substance: LETROZOLE
     Indication: Breast cancer recurrent
     Dosage: UNK
     Route: 065
     Dates: start: 201704, end: 202301

REACTIONS (2)
  - Blood test abnormal [Unknown]
  - Alopecia [Unknown]

NARRATIVE: CASE EVENT DATE: 20230101
